FAERS Safety Report 13196281 (Version 5)
Quarter: 2017Q3

REPORT INFORMATION
  Report Type: Spontaneous
  Country: US (occurrence: US)
  Receive Date: 20170208
  Receipt Date: 20170804
  Transmission Date: 20171127
  Serious: Yes (Hospitalization)
  Sender: FDA-Public Use
  Company Number: US-PFIZER INC-2017052178

PATIENT
  Age: 75 Year
  Sex: Female

DRUGS (10)
  1. KEFLEX [Concomitant]
     Active Substance: CEPHALEXIN
     Dosage: UNK
     Dates: start: 201705, end: 20170601
  2. IBRANCE [Suspect]
     Active Substance: PALBOCICLIB
     Dosage: 100 MG, CYCLIC (TAKE 1 CAPSULE BY MOUTH ONCE DAILY FOR 21 DAYS EVERY 28 DAYS) (21 DAY ON 7 DAY OFF)
     Route: 048
     Dates: start: 20170124
  3. ANASTROZOLE. [Concomitant]
     Active Substance: ANASTROZOLE
     Dosage: UNK
     Dates: start: 20160910, end: 201704
  4. IBRANCE [Suspect]
     Active Substance: PALBOCICLIB
     Indication: BREAST CANCER METASTATIC
     Dosage: 125 MG, CYCLIC (ON 21 DAYS AND OFF 7 DAYS)
     Route: 048
     Dates: start: 20170125
  5. PROLIA [Concomitant]
     Active Substance: DENOSUMAB
     Dosage: UNK
     Dates: start: 201610
  6. FASLODEX [Concomitant]
     Active Substance: FULVESTRANT
     Dosage: UNK
     Dates: start: 201701
  7. ALBUTEROL. [Concomitant]
     Active Substance: ALBUTEROL
     Dosage: UNK, AS NEEDED
     Dates: start: 20160903
  8. TRAMADOL. [Concomitant]
     Active Substance: TRAMADOL
     Dosage: UNK
  9. CALCIUM 600 [Concomitant]
     Dosage: UNK
     Dates: start: 201610
  10. VITAMIN D [Concomitant]
     Active Substance: CHOLECALCIFEROL
     Dosage: UNK
     Dates: start: 2010

REACTIONS (4)
  - Pain [Not Recovered/Not Resolved]
  - Cellulitis [Recovered/Resolved]
  - White blood cell count decreased [Recovered/Resolved]
  - Nausea [Recovering/Resolving]

NARRATIVE: CASE EVENT DATE: 201701
